FAERS Safety Report 5695290-1 (Version None)
Quarter: 2008Q2

REPORT INFORMATION
  Report Type: 
  Country: None (occurrence: None)
  Receive Date: 20080404
  Receipt Date: 20080326
  Transmission Date: 20081010
  Serious: Yes (Hospitalization, Other)
  Sender: FDA-Public Use
  Company Number: BR-ABBOTT-08P-020-0443944-00

PATIENT
  Age: 57 Year
  Sex: Female

DRUGS (6)
  1. SIBUTRAMINE [Suspect]
     Indication: WEIGHT DECREASED
     Route: 048
     Dates: start: 20070801, end: 20080127
  2. SIBUTRAMINE [Suspect]
     Indication: OBESITY
  3. AMFEPRAMONE HYDROCHLORIDE [Suspect]
     Indication: OBESITY
     Route: 048
     Dates: start: 20070801, end: 20080127
  4. LEVOTHYROXINE SODIUM [Concomitant]
     Indication: HYPOTHYROIDISM
     Route: 048
     Dates: start: 20040101
  5. BUMETANIDE [Concomitant]
     Indication: OBESITY
     Route: 048
     Dates: start: 20070801, end: 20080127
  6. ESTRADIOL [Concomitant]
     Indication: HYSTERECTOMY
     Dates: start: 20000101

REACTIONS (22)
  - ANOREXIA [None]
  - DEMYELINATION [None]
  - DEPRESSION [None]
  - DYSPHONIA [None]
  - DYSPNOEA [None]
  - FATIGUE [None]
  - GAIT DISTURBANCE [None]
  - HAEMATEMESIS [None]
  - HERPES SIMPLEX [None]
  - HYPERSENSITIVITY [None]
  - IRRITABILITY [None]
  - LABYRINTHITIS [None]
  - MALAISE [None]
  - MUSCLE CONTRACTURE [None]
  - NERVOUS SYSTEM DISORDER [None]
  - PARALYSIS [None]
  - QUADRIPLEGIA [None]
  - RENAL COLIC [None]
  - SPEECH DISORDER [None]
  - ULCER [None]
  - UNEVALUABLE EVENT [None]
  - VASCULITIS [None]
